FAERS Safety Report 18302162 (Version 2)
Quarter: 2020Q4

REPORT INFORMATION
  Report Type: Spontaneous
  Country: US (occurrence: US)
  Receive Date: 20200923
  Receipt Date: 20201002
  Transmission Date: 20210113
  Serious: Yes (Other)
  Sender: FDA-Public Use
  Company Number: US-MYLANLABS-2020M1079814

PATIENT
  Age: 6 Year
  Sex: Male
  Weight: 20 kg

DRUGS (2)
  1. SCOPOLAMINE TRANSDERMAL SYSTEM [Suspect]
     Active Substance: SCOPOLAMINE
     Indication: NAUSEA
     Dosage: 1 MILLIGRAM (3 DAYS)
     Route: 062
  2. SCOPOLAMINE TRANSDERMAL SYSTEM [Suspect]
     Active Substance: SCOPOLAMINE
     Indication: SALIVARY HYPERSECRETION
     Dosage: 1 MILLIGRAM (3 DAYS)
     Route: 062

REACTIONS (4)
  - Product adhesion issue [Not Recovered/Not Resolved]
  - Euphoric mood [Not Recovered/Not Resolved]
  - Drug ineffective [Not Recovered/Not Resolved]
  - Hallucination [Not Recovered/Not Resolved]

NARRATIVE: CASE EVENT DATE: 20200914
